FAERS Safety Report 11817217 (Version 1)
Quarter: 2015Q4

REPORT INFORMATION
  Report Type: Spontaneous
  Country: US (occurrence: US)
  Receive Date: 20151210
  Receipt Date: 20151210
  Transmission Date: 20160305
  Serious: No
  Sender: FDA-Public Use
  Company Number: US-JNJFOC-20150609748

PATIENT
  Age: 23 Year
  Sex: Male

DRUGS (2)
  1. INVEGA [Suspect]
     Active Substance: PALIPERIDONE
     Indication: PRODUCT USED FOR UNKNOWN INDICATION
     Route: 048
     Dates: start: 2012
  2. RISPERDAL [Suspect]
     Active Substance: RISPERIDONE
     Indication: PRODUCT USED FOR UNKNOWN INDICATION
     Dosage: VARYING DOSES OF 2 TO 4MG.
     Route: 048
     Dates: start: 2009, end: 2013

REACTIONS (4)
  - Hyperglycaemia [Unknown]
  - Abnormal weight gain [Unknown]
  - Gynaecomastia [Unknown]
  - Hyperprolactinaemia [Unknown]

NARRATIVE: CASE EVENT DATE: 201408
